FAERS Safety Report 24635588 (Version 1)
Quarter: 2024Q4

REPORT INFORMATION
  Report Type: Spontaneous
  Country: US (occurrence: US)
  Receive Date: 20241119
  Receipt Date: 20241119
  Transmission Date: 20250114
  Serious: No
  Sender: CATALYST PHARMA
  Company Number: US-CATALYST PHARMACEUTICALS-US-CATA-24-00823

PATIENT
  Age: 11 Year
  Sex: Male
  Weight: 41.293 kg

DRUGS (11)
  1. AGAMREE [Suspect]
     Active Substance: VAMOROLONE
     Indication: Duchenne muscular dystrophy
     Dosage: 5.8 ML DAILY
     Route: 048
     Dates: start: 20240604, end: 20240731
  2. AGAMREE [Suspect]
     Active Substance: VAMOROLONE
     Dosage: 4.2 ML DAILY
     Route: 048
     Dates: start: 20240801, end: 20240820
  3. PREDNISONE [Suspect]
     Active Substance: PREDNISONE
     Indication: Product used for unknown indication
     Dosage: UNKNOWN
     Route: 065
     Dates: start: 20240821
  4. LISINOPRIL [Concomitant]
     Active Substance: LISINOPRIL
     Indication: Product used for unknown indication
     Dosage: 2.5 MG DAILY
     Route: 065
  5. VITAMIN D3 [Concomitant]
     Active Substance: CHOLECALCIFEROL
     Indication: Product used for unknown indication
     Dosage: 2000 IU DAILY
     Route: 065
  6. COENZYME Q10 [Concomitant]
     Active Substance: DIETARY SUPPLEMENT\UBIDECARENONE
     Indication: Product used for unknown indication
     Dosage: 200 MG DAILY
     Route: 065
  7. VITAMINS [Concomitant]
     Active Substance: VITAMINS
     Indication: Product used for unknown indication
     Dosage: 1 TABLET DAILY
     Route: 065
  8. CREATINE [Concomitant]
     Active Substance: CREATINE
     Indication: Product used for unknown indication
     Dosage: 2.5 GRAMS DAILY
     Route: 065
  9. VILTEPSO [Concomitant]
     Active Substance: VILTOLARSEN
     Indication: Product used for unknown indication
     Dosage: 250 MG/ 5 ML WEEKLY
     Route: 042
  10. CLARITIN [Concomitant]
     Active Substance: LORATADINE
     Indication: Product used for unknown indication
     Dosage: 10 MG DAILY
     Route: 065
  11. FLONASE [Concomitant]
     Active Substance: FLUTICASONE PROPIONATE
     Indication: Product used for unknown indication
     Dosage: 50 MCG/ACT AS NEEDED
     Route: 065

REACTIONS (3)
  - Mental disorder [Not Recovered/Not Resolved]
  - Anger [Not Recovered/Not Resolved]
  - Weight increased [Not Recovered/Not Resolved]

NARRATIVE: CASE EVENT DATE: 20240601
